FAERS Safety Report 8014600-3 (Version None)
Quarter: 2011Q4

REPORT INFORMATION
  Report Type: 
  Country: None (occurrence: None)
  Receive Date: 20111229
  Receipt Date: 20111222
  Transmission Date: 20120403
  Serious: Yes (Hospitalization)
  Sender: FDA-Public Use
  Company Number: GB-GLAXOSMITHKLINE-Z0013440A

PATIENT
  Sex: Female
  Weight: 98 kg

DRUGS (3)
  1. FLUCONAZOLE [Concomitant]
     Indication: INFECTION PROPHYLAXIS
     Dosage: 50MG PER DAY
     Route: 048
     Dates: start: 20111116
  2. OFATUMUMAB [Suspect]
     Indication: DIFFUSE LARGE B-CELL LYMPHOMA
     Dosage: 1000MG CYCLIC
     Route: 042
  3. COTRIM [Concomitant]
     Indication: INFECTION PROPHYLAXIS
     Dosage: 960MG THREE TIMES PER WEEK
     Route: 048
     Dates: start: 20111116

REACTIONS (1)
  - THROMBOSIS [None]
